FAERS Safety Report 15776559 (Version 2)
Quarter: 2019Q1

REPORT INFORMATION
  Report Type: Spontaneous
  Country: US (occurrence: US)
  Receive Date: 20181231
  Receipt Date: 20190213
  Transmission Date: 20190417
  Serious: No
  Sender: FDA-Public Use
  Company Number: US-PFIZER INC-2018532566

PATIENT
  Age: 10 Year
  Sex: Female

DRUGS (2)
  1. GENOTROPIN [Suspect]
     Active Substance: SOMATROPIN
     Dosage: 2.2 MG, DAILY
     Dates: start: 201711
  2. GENOTROPIN [Suspect]
     Active Substance: SOMATROPIN
     Dosage: 2.2 MG, DAILY
     Dates: start: 20170611

REACTIONS (9)
  - Lymphocyte count decreased [Unknown]
  - Blood cholesterol increased [Unknown]
  - Blood triglycerides increased [Unknown]
  - Carbon dioxide decreased [Unknown]
  - Platelet count increased [Unknown]
  - Anion gap decreased [Unknown]
  - Blood creatinine decreased [Unknown]
  - Vitamin D decreased [Unknown]
  - Non-high-density lipoprotein cholesterol increased [Unknown]

NARRATIVE: CASE EVENT DATE: 20181012
